FAERS Safety Report 8173179-6 (Version None)
Quarter: 2012Q1

REPORT INFORMATION
  Report Type: 
  Country: None (occurrence: None)
  Receive Date: 20120229
  Receipt Date: 20110601
  Transmission Date: 20120608
  Serious: No
  Sender: FDA-Public Use
  Company Number: US-GLAXOSMITHKLINE-A0930802A

PATIENT
  Age: 61 Year
  Sex: Female

DRUGS (4)
  1. GSK AUTOINJECTOR [Suspect]
     Indication: MIGRAINE
     Dosage: 6MG AS REQUIRED
     Route: 058
     Dates: start: 20100423
  2. SUMATRIPTAN [Concomitant]
     Dosage: 100MG AS REQUIRED
     Route: 048
  3. FIORICET [Concomitant]
     Indication: MIGRAINE
  4. SUMATRIPTAN [Suspect]
     Indication: MIGRAINE
     Dosage: 6MG AS REQUIRED
     Route: 058
     Dates: start: 20100423

REACTIONS (2)
  - DRUG INEFFECTIVE [None]
  - PRODUCT QUALITY ISSUE [None]
